FAERS Safety Report 5025428-0 (Version None)
Quarter: 2006Q2

REPORT INFORMATION
  Report Type: 
  Country: None (occurrence: None)
  Receive Date: 20060608
  Receipt Date: 20060530
  Transmission Date: 20061013
  Serious: Yes (Other)
  Sender: FDA-Public Use
  Company Number: 2006070037

PATIENT
  Age: 49 Year
  Sex: Female
  Weight: 98.4306 kg

DRUGS (4)
  1. LIPITOR [Suspect]
     Indication: BLOOD CHOLESTEROL INCREASED
     Dosage: 10 MG (10  MG, 1 IN 1 D)
  2. CLARINEX [Concomitant]
  3. ALL OTHER THERAPEUTIC PRODUCTS (ALL OTHER THERAPEUTIC PRODUCTS) [Concomitant]
  4. WELLBUTRIN [Concomitant]

REACTIONS (11)
  - ARTHROPATHY [None]
  - BURSITIS [None]
  - DRUG INEFFECTIVE [None]
  - EXOSTOSIS [None]
  - FIBROMYALGIA [None]
  - LYMPHOEDEMA [None]
  - MENOPAUSE [None]
  - MYALGIA [None]
  - PAIN IN EXTREMITY [None]
  - SPINAL FUSION SURGERY [None]
  - WEIGHT INCREASED [None]
